FAERS Safety Report 8130855 (Version 4)
Quarter: 2013Q2

REPORT INFORMATION
  Report Type: Spontaneous
  Country: US (occurrence: None)
  Receive Date: 20110831
  Receipt Date: 20130411
  Transmission Date: 20140414
  Serious: Yes (Hospitalization, Other)
  Sender: FDA-Public Use
  Company Number: CIP11000503

PATIENT
  Age: 70 Year
  Sex: Male
  Weight: 78.6 kg

DRUGS (31)
  1. ACTONEL [Suspect]
     Dosage: 5 MG DAILY, ORAL
     Route: 048
     Dates: start: 2001, end: 20020912
  2. ACTONEL [Suspect]
     Dosage: 35 MG ONCE WEEKLY, ORAL
     Route: 048
     Dates: start: 20020912, end: 2006
  3. FOSAMAX [Suspect]
     Indication: OSTEOPOROSIS
     Dosage: 40 MG WEEKLY, ORAL
     Route: 048
     Dates: start: 2009, end: 2009
  4. ARTHROTEC [Concomitant]
  5. NASONEX [Concomitant]
  6. DIOVAN HCT [Concomitant]
  7. SKELAXIN [Concomitant]
  8. HYDROCODONE BITARTRATE + ACETAMINOPHEN [Concomitant]
  9. FLOMAX [Concomitant]
  10. NEXIUM [Concomitant]
  11. PROSCAR [Concomitant]
  12. CLARINEX-D [Concomitant]
  13. NEURONTIN [Concomitant]
  14. TOPROL XL [Concomitant]
  15. ZOCOR [Concomitant]
  16. QUININE SULFATE [Concomitant]
  17. PREDNISONE [Concomitant]
  18. DIAZEPAM [Concomitant]
  19. ANUCORT-HC [Concomitant]
  20. HYDROMET [Concomitant]
  21. NASACORT AQ [Concomitant]
  22. TRAZODONE HYDROCHLORIDE [Concomitant]
  23. METHOCARBAMOL [Concomitant]
  24. OXYCODONE AND ACETAMINOPHEN [Concomitant]
  25. OXYCONTIN [Concomitant]
  26. AMBIEN [Concomitant]
  27. FEXOFENADINE [Concomitant]
  28. ASPIRIN [Concomitant]
  29. MULTIVITAMIN [Concomitant]
  30. VITAMIN E [Concomitant]
  31. ALENDRONATE [Suspect]
     Indication: OSTEOPOROSIS
     Dates: start: 20080703, end: 201003

REACTIONS (17)
  - Femur fracture [None]
  - Pathological fracture [None]
  - Arthralgia [None]
  - Arthropathy [None]
  - Joint instability [None]
  - Fall [None]
  - Gait disturbance [None]
  - Anaemia postoperative [None]
  - Device failure [None]
  - Condition aggravated [None]
  - Fracture nonunion [None]
  - Limb asymmetry [None]
  - Joint injury [None]
  - Immobile [None]
  - Urinary retention postoperative [None]
  - Device breakage [None]
  - Bone graft [None]
